FAERS Safety Report 6418888-1 (Version None)
Quarter: 2009Q4

REPORT INFORMATION
  Report Type: 
  Country: None (occurrence: None)
  Receive Date: 20091029
  Receipt Date: 20091019
  Transmission Date: 20100525
  Serious: Yes (Hospitalization)
  Sender: FDA-Public Use
  Company Number: JP-SANOFI-SYNTHELABO-A01200910338

PATIENT
  Sex: Female

DRUGS (10)
  1. QUAZEPAM [Concomitant]
     Indication: DRUG USE FOR UNKNOWN INDICATION
     Dosage: UNK
     Route: 065
  2. DUROTEP [Concomitant]
     Indication: PAIN
     Dosage: UNK
     Route: 062
     Dates: start: 20061117
  3. RESLIN [Suspect]
     Indication: INSOMNIA
     Route: 048
     Dates: start: 20061222, end: 20070109
  4. RESLIN [Suspect]
     Indication: ADJUSTMENT DISORDER
     Route: 048
     Dates: start: 20061222, end: 20070109
  5. RESLIN [Suspect]
     Indication: ANXIETY
     Route: 048
     Dates: start: 20061222, end: 20070109
  6. LENDORMIN [Suspect]
     Indication: INSOMNIA
     Dosage: UNK
     Route: 048
     Dates: start: 20061223, end: 20061230
  7. ZOPICLONE [Concomitant]
     Indication: DRUG USE FOR UNKNOWN INDICATION
     Dosage: UNK
     Route: 065
  8. DEPAS [Suspect]
     Indication: ANXIETY
     Route: 048
     Dates: start: 20061104, end: 20061230
  9. DEPAS [Suspect]
     Indication: INSOMNIA
     Route: 048
     Dates: start: 20061104, end: 20061230
  10. MYSLEE [Suspect]
     Indication: INSOMNIA
     Route: 048
     Dates: start: 20070106, end: 20070107

REACTIONS (1)
  - DELIRIUM [None]
